FAERS Safety Report 26060809 (Version 1)
Quarter: 2025Q4

REPORT INFORMATION
  Report Type: Spontaneous
  Country: US (occurrence: US)
  Receive Date: 20251118
  Receipt Date: 20251118
  Transmission Date: 20260118
  Serious: Yes (Other)
  Sender: MYLAN
  Company Number: US-MYLANLABS-2025M1097633

PATIENT
  Sex: Female
  Weight: 72.57 kg

DRUGS (4)
  1. ZOLOFT [Suspect]
     Active Substance: SERTRALINE HYDROCHLORIDE
     Indication: Anxiety
     Dosage: 125 MILLIGRAM, PM (ONCE A DAY AT BEDTIME)
  2. ZOLOFT [Suspect]
     Active Substance: SERTRALINE HYDROCHLORIDE
     Dosage: 125 MILLIGRAM, PM (ONCE A DAY AT BEDTIME)
     Route: 065
  3. ZOLOFT [Suspect]
     Active Substance: SERTRALINE HYDROCHLORIDE
     Dosage: 125 MILLIGRAM, PM (ONCE A DAY AT BEDTIME)
     Route: 065
  4. ZOLOFT [Suspect]
     Active Substance: SERTRALINE HYDROCHLORIDE
     Dosage: 125 MILLIGRAM, PM (ONCE A DAY AT BEDTIME)

REACTIONS (3)
  - Loss of consciousness [Unknown]
  - Mental disorder [Unknown]
  - Irritability [Unknown]
